FAERS Safety Report 19065075 (Version 2)
Quarter: 2021Q1

REPORT INFORMATION
  Report Type: Spontaneous
  Country: CA (occurrence: CA)
  Receive Date: 20210326
  Receipt Date: 20210329
  Transmission Date: 20210420
  Serious: Yes (Other)
  Sender: FDA-Public Use
  Company Number: CA-CELLTRION INC.-2020CA021655

PATIENT

DRUGS (12)
  1. INFLECTRA [Suspect]
     Active Substance: INFLIXIMAB-DYYB
     Dosage: 400 MG, AT 0, 2, 6 WEEKS, THEN EVERY 8 WEEKS
     Route: 042
     Dates: start: 20200411, end: 20200411
  2. INFLECTRA [Suspect]
     Active Substance: INFLIXIMAB-DYYB
     Dosage: 700 MG (10 MG/KG), EVERY 8 WEEKS
     Route: 042
     Dates: start: 20200727, end: 20200727
  3. MEZAVANT [Concomitant]
     Active Substance: MESALAMINE
     Dosage: 3.6 G, DAILY
     Route: 048
  4. MEZAVANT [Concomitant]
     Active Substance: MESALAMINE
     Dosage: 3.6 G, 1X/DAY
     Route: 048
  5. INFLECTRA [Suspect]
     Active Substance: INFLIXIMAB-DYYB
     Indication: COLITIS ULCERATIVE
     Dosage: 400 MG, 0, 2, 6, THEN EVERY 8 WEEKS
     Route: 042
     Dates: start: 20200127, end: 20200127
  6. INFLECTRA [Suspect]
     Active Substance: INFLIXIMAB-DYYB
     Dosage: 400 MG, 0, 2, 6, THEN EVERY 8 WEEKS
     Route: 042
     Dates: start: 20200313, end: 20200313
  7. INFLECTRA [Suspect]
     Active Substance: INFLIXIMAB-DYYB
     Dosage: 700 MG (10 MG/KG) EVERY 8 WEEKS
     Route: 042
     Dates: start: 20200727, end: 20200727
  8. INFLECTRA [Suspect]
     Active Substance: INFLIXIMAB-DYYB
     Dosage: 700 MG (10 MG/KG), EVERY 8 WEEKS
     Route: 042
     Dates: start: 20210111
  9. PREDNISONE. [Concomitant]
     Active Substance: PREDNISONE
     Dosage: 30 MG
     Route: 048
  10. INFLECTRA [Suspect]
     Active Substance: INFLIXIMAB-DYYB
     Dosage: 400 MG, 0, 2, 6, THEN EVERY 8 WEEKS
     Route: 042
     Dates: start: 20200411, end: 20200411
  11. INFLECTRA [Suspect]
     Active Substance: INFLIXIMAB-DYYB
     Dosage: 400 MG, 0, 2, 6, THEN EVERY 8 WEEKS
     Route: 042
     Dates: start: 20200601, end: 20200601
  12. INFLECTRA [Suspect]
     Active Substance: INFLIXIMAB-DYYB
     Dosage: 700 MG (10 MG/KG), EVERY 8 WEEKS
     Route: 042
     Dates: start: 20201116, end: 20201116

REACTIONS (10)
  - Drug level below therapeutic [Unknown]
  - Pyrexia [Unknown]
  - Weight decreased [Not Recovered/Not Resolved]
  - Intentional product use issue [Unknown]
  - Cytomegalovirus infection [Unknown]
  - Condition aggravated [Unknown]
  - Headache [Unknown]
  - Nausea [Recovered/Resolved]
  - Off label use [Unknown]
  - Clostridium difficile infection [Unknown]

NARRATIVE: CASE EVENT DATE: 2020
